FAERS Safety Report 5935605-X (Version None)
Quarter: 2008Q4

REPORT INFORMATION
  Report Type: 
  Country: None (occurrence: None)
  Receive Date: 20081030
  Receipt Date: 20081024
  Transmission Date: 20090506
  Serious: Yes (Hospitalization)
  Sender: FDA-Public Use
  Company Number: B0544004A

PATIENT
  Age: 34 Year
  Sex: Female
  Weight: 74 kg

DRUGS (2)
  1. SERETIDE [Suspect]
     Indication: ASTHMA
     Dates: start: 20080913, end: 20081015
  2. SALBUTAMOL [Concomitant]
     Indication: ASTHMA
     Route: 055
     Dates: start: 20080913, end: 20080915

REACTIONS (2)
  - ABORTION THREATENED [None]
  - DRUG EXPOSURE DURING PREGNANCY [None]
